FAERS Safety Report 9251301 (Version 1)
Quarter: 2013Q1

REPORT INFORMATION
  Report Type: Spontaneous
  Country: US (occurrence: None)
  Receive Date: 20130305
  Receipt Date: 20130305
  Transmission Date: 20140127
  Serious: Yes (Other)
  Sender: FDA-Public Use
  Company Number: 163-21880-12042326

PATIENT
  Age: 78 Year
  Sex: Female

DRUGS (10)
  1. REVLIMID [Suspect]
     Indication: CHRONIC LYMPHOCYTIC LEUKAEMIA
     Dosage: 1 IN 1 D
     Route: 048
     Dates: start: 20120111, end: 20120410
  2. REVLIMID [Suspect]
     Indication: PRODUCT USED FOR UNKNOWN INDICATION
     Dosage: 1 IN 1 D
     Route: 048
     Dates: start: 20120111, end: 20120410
  3. PRILOSEC [Concomitant]
  4. ALLOPURINOL [Concomitant]
  5. ACYCLOVIR (ACICLOVIR) (ACICLOVIR) [Concomitant]
  6. CALCIUM (CALCIUM) [Concomitant]
  7. FOLIC ACID (FOLIC ACID) [Concomitant]
  8. HYDROCHLOROTHIAZIDE (HYDROCHLOROTHIAZIDE) [Concomitant]
  9. WARFARIN (WARFARIN) [Concomitant]
  10. LOPRESSOR (METOPROLOL TARTRATE) [Concomitant]

REACTIONS (4)
  - Weight decreased [None]
  - Fatigue [None]
  - Nausea [None]
  - Decreased appetite [None]
